FAERS Safety Report 8847911 (Version 2)
Quarter: 2014Q3

REPORT INFORMATION
  Report Type: Spontaneous
  Country: US (occurrence: US)
  Receive Date: 20121018
  Receipt Date: 20140826
  Transmission Date: 20150326
  Serious: Yes (Hospitalization)
  Sender: FDA-Public Use
  Company Number: US-009507513-2009SP017640

PATIENT
  Sex: Female
  Weight: 70.31 kg

DRUGS (1)
  1. NUVARING [Suspect]
     Active Substance: ETHINYL ESTRADIOL\ETONOGESTREL
     Indication: CONTRACEPTION
     Dosage: 1 DF, QM
     Dates: start: 200505, end: 200606

REACTIONS (19)
  - Contusion [Unknown]
  - Gastroenteritis viral [Unknown]
  - Deep vein thrombosis [Recovering/Resolving]
  - Dysthymic disorder [Not Recovered/Not Resolved]
  - Smear cervix abnormal [Unknown]
  - Pain [Unknown]
  - Dyspnoea [Unknown]
  - Loop electrosurgical excision procedure [Unknown]
  - Haematoma [Recovering/Resolving]
  - Antiphospholipid antibodies positive [Unknown]
  - Anxiety [Unknown]
  - Chest pain [Unknown]
  - Fibrocystic breast disease [Unknown]
  - Oral herpes [Unknown]
  - Headache [Unknown]
  - Haematocrit decreased [Unknown]
  - Acne [Unknown]
  - Scar [Unknown]
  - Menorrhagia [Unknown]

NARRATIVE: CASE EVENT DATE: 200507
